FAERS Safety Report 11680241 (Version 2)
Quarter: 2015Q4

REPORT INFORMATION
  Report Type: Spontaneous
  Country: US (occurrence: US)
  Receive Date: 20151027
  Receipt Date: 20151104
  Transmission Date: 20160304
  Serious: No
  Sender: FDA-Public Use
  Company Number: US-ELI_LILLY_AND_COMPANY-US201002002611

PATIENT
  Sex: Female
  Weight: 66.67 kg

DRUGS (14)
  1. FORTEO [Suspect]
     Active Substance: TERIPARATIDE
     Indication: OSTEOPOROSIS
     Dosage: 20 UG, DAILY (1/D)
     Route: 058
     Dates: start: 200907, end: 20110210
  2. MTV [Concomitant]
  3. HYDROCODONE [Concomitant]
     Active Substance: HYDROCODONE
  4. LORAZEPAM. [Concomitant]
     Active Substance: LORAZEPAM
  5. HYOSCYAMINE. [Concomitant]
     Active Substance: HYOSCYAMINE
  6. ALIGN [Concomitant]
     Active Substance: BIFIDOBACTERIUM LONGUM SUBSP. INFANTIS
  7. OXYGEN. [Concomitant]
     Active Substance: OXYGEN
  8. HYDROCHLOROTHIAZIDE. [Concomitant]
     Active Substance: HYDROCHLOROTHIAZIDE
  9. VITAMIN D [Concomitant]
     Active Substance: CHOLECALCIFEROL
  10. KCL [Concomitant]
     Active Substance: POTASSIUM CHLORIDE
  11. VITAMIN B12 [Concomitant]
     Active Substance: CYANOCOBALAMIN
  12. MAALOX ANTACID [Concomitant]
     Active Substance: ALUMINUM HYDROXIDE\DIMETHICONE\MAGNESIUM HYDROXIDE
  13. AMLODIPINE [Concomitant]
     Active Substance: AMLODIPINE BESYLATE
  14. VITAMIN C [Concomitant]
     Active Substance: ASCORBIC ACID

REACTIONS (5)
  - Weight increased [Unknown]
  - Fluid retention [Unknown]
  - Joint swelling [Unknown]
  - Myalgia [Unknown]
  - Arthralgia [Unknown]
